FAERS Safety Report 4415103-5 (Version None)
Quarter: 2004Q3

REPORT INFORMATION
  Report Type: 
  Country: None (occurrence: None)
  Receive Date: 20040804
  Receipt Date: 20040726
  Transmission Date: 20050211
  Serious: Yes (Hospitalization)
  Sender: FDA-Public Use
  Company Number: FR-BRISTOL-MYERS SQUIBB COMPANY-12653325

PATIENT
  Age: 71 Year
  Sex: Female

DRUGS (12)
  1. FOZITEC TABS [Suspect]
     Route: 048
     Dates: end: 20040610
  2. AMLOR [Suspect]
     Route: 048
     Dates: end: 20040610
  3. ZOLOFT [Suspect]
     Route: 048
     Dates: end: 20040610
  4. TAHOR [Suspect]
     Dosage: DOSE INCREASED IN MAY2004 FROM 10MG/D TO 20MG/D
     Route: 048
     Dates: end: 20040610
  5. VALPROATE SODIUM [Suspect]
     Route: 048
     Dates: end: 20040610
  6. FLUDEX [Suspect]
     Route: 048
     Dates: end: 20040610
  7. XANAX [Concomitant]
     Route: 048
  8. DIFFU-K [Concomitant]
     Route: 048
  9. TERCIAN [Concomitant]
     Route: 048
  10. IMOVANE [Concomitant]
     Route: 048
  11. LEVOTHYROXINE SODIUM [Concomitant]
     Route: 048
  12. ASPIRIN [Concomitant]
     Route: 048

REACTIONS (1)
  - PANCREATITIS NECROTISING [None]
